FAERS Safety Report 7749571-8 (Version None)
Quarter: 2011Q3

REPORT INFORMATION
  Report Type: 
  Country: None (occurrence: None)
  Receive Date: 20110907
  Receipt Date: 20110831
  Transmission Date: 20111222
  Serious: Yes (Death)
  Sender: FDA-Public Use
  Company Number: 2011SP033924

PATIENT
  Age: 53 Year
  Sex: Male
  Weight: 54 kg

DRUGS (3)
  1. REBETOL [Suspect]
     Indication: HEPATITIS C
     Dosage: 600 MG, QD, PO
     Route: 048
     Dates: start: 20090226, end: 20090625
  2. PEG-INTRON [Suspect]
     Indication: HEPATITIS C
     Dosage: 80;40 MCG, QW, SC
     Route: 058
     Dates: start: 20090226, end: 20090312
  3. PEG-INTRON [Suspect]
     Indication: HEPATITIS C
     Dosage: 80;40 MCG, QW, SC
     Route: 058
     Dates: start: 20090319, end: 20090625

REACTIONS (6)
  - PYREXIA [None]
  - MALAISE [None]
  - INTERSTITIAL LUNG DISEASE [None]
  - PLEURISY [None]
  - STILL'S DISEASE ADULT ONSET [None]
  - CONDITION AGGRAVATED [None]
